FAERS Safety Report 9324743 (Version 2)
Quarter: 2013Q3

REPORT INFORMATION
  Report Type: Spontaneous
  Country: US (occurrence: US)
  Receive Date: 20130603
  Receipt Date: 20130704
  Transmission Date: 20140515
  Serious: Yes (Other)
  Sender: FDA-Public Use
  Company Number: US-JNJFOC-20130516372

PATIENT
  Age: 64 Year
  Sex: Female
  Weight: 107.96 kg

DRUGS (15)
  1. XARELTO [Suspect]
     Indication: CEREBROVASCULAR ACCIDENT PROPHYLAXIS
     Route: 048
     Dates: start: 20130509, end: 20130518
  2. XARELTO [Suspect]
     Indication: ATRIAL FIBRILLATION
     Route: 048
     Dates: start: 20130509, end: 20130518
  3. ZOCOR [Concomitant]
     Indication: CARDIAC DISORDER
     Dosage: AT BEDTIME
     Route: 048
     Dates: start: 20130321
  4. ZOCOR [Concomitant]
     Indication: BLOOD CHOLESTEROL
     Dosage: AT BEDTIME
     Route: 048
     Dates: start: 20130321
  5. PACERONE [Concomitant]
     Indication: CARDIAC DISORDER
     Route: 048
     Dates: start: 20130321
  6. PACERONE [Concomitant]
     Indication: ARRHYTHMIA PROPHYLAXIS
     Route: 048
     Dates: start: 20130321
  7. KLOR-CON [Concomitant]
     Indication: CARDIAC DISORDER
     Dosage: TWO TABLETS TWICE A DAY
     Route: 048
     Dates: start: 20130321
  8. KLOR-CON [Concomitant]
     Indication: BLOOD POTASSIUM ABNORMAL
     Dosage: TWO TABLETS TWICE A DAY
     Route: 048
     Dates: start: 20130321
  9. METOPROLOL TARTRATE [Concomitant]
     Indication: CARDIAC DISORDER
     Route: 048
     Dates: start: 20130321
  10. COMBIVENT [Concomitant]
     Indication: ASTHMA
     Route: 048
     Dates: start: 2011
  11. SYMBICORT [Concomitant]
     Indication: ASTHMA
     Dosage: 2 PUFFS TWICE A DAY
     Route: 048
  12. QVAR [Concomitant]
     Indication: ASTHMA
     Dosage: 2 PUFFS TWICE A DAY
     Route: 048
  13. LASIX [Concomitant]
     Indication: CARDIAC DISORDER
     Route: 048
     Dates: start: 20130322
  14. LASIX [Concomitant]
     Indication: FLUID RETENTION
     Route: 048
     Dates: start: 20130322
  15. FUROSEMIDE [Concomitant]
     Route: 065
     Dates: start: 20130321

REACTIONS (5)
  - Dyspnoea [Recovered/Resolved]
  - Heart rate irregular [Recovered/Resolved]
  - Weight increased [Unknown]
  - Fatigue [Recovered/Resolved]
  - Local swelling [Recovered/Resolved]
